FAERS Safety Report 19394362 (Version 1)
Quarter: 2021Q2

REPORT INFORMATION
  Report Type: Report from Study
  Country: GB (occurrence: GB)
  Receive Date: 20210609
  Receipt Date: 20210609
  Transmission Date: 20210717
  Serious: Yes (Other)
  Sender: FDA-Public Use
  Company Number: GB-GW PHARMA-201907GBGW2601

PATIENT

DRUGS (11)
  1. SODIUM VALPROATE [Concomitant]
     Active Substance: VALPROATE SODIUM
     Indication: PRODUCT USED FOR UNKNOWN INDICATION
     Dosage: 600 MILLIGRAM, BID
     Route: 065
  2. CLOBAZAM. [Concomitant]
     Active Substance: CLOBAZAM
     Indication: PRODUCT USED FOR UNKNOWN INDICATION
     Dosage: 30 MILLIGRAM, QD (10 MG AM AND 20 MG PM, PRN)
     Route: 048
  3. TOPIRAMATE. [Concomitant]
     Active Substance: TOPIRAMATE
     Indication: PRODUCT USED FOR UNKNOWN INDICATION
     Dosage: 150 MILLIGRAM, QD (50 MG AM AND 100 MG PM)
     Route: 065
  4. EPIDIOLEX [Suspect]
     Active Substance: CANNABIDIOL
     Dosage: 170 MILLIGRAM, BID
     Route: 048
     Dates: start: 20190722, end: 20190724
  5. PARALDEHYDE [Concomitant]
     Active Substance: PARALDEHYDE
     Indication: PRODUCT USED FOR UNKNOWN INDICATION
     Dosage: UNK, PRN
     Route: 054
  6. CALCICHEW [Concomitant]
     Active Substance: CALCIUM CARBONATE
     Indication: PRODUCT USED FOR UNKNOWN INDICATION
     Dosage: UNK
     Route: 065
  7. LORATADINE. [Concomitant]
     Active Substance: LORATADINE
     Indication: PRODUCT USED FOR UNKNOWN INDICATION
     Dosage: UNK
     Route: 065
  8. MIDAZOLAM. [Concomitant]
     Active Substance: MIDAZOLAM
     Indication: PRODUCT USED FOR UNKNOWN INDICATION
     Dosage: UNK, PRN
     Route: 002
  9. EPIDIOLEX [Suspect]
     Active Substance: CANNABIDIOL
     Dosage: 510 MILLIGRAM, QD
     Route: 048
     Dates: start: 20190712, end: 20190721
  10. EPIDIOLEX [Suspect]
     Active Substance: CANNABIDIOL
     Indication: SEVERE MYOCLONIC EPILEPSY OF INFANCY
     Dosage: 170 MILLIGRAM, BID
     Route: 048
     Dates: start: 20190617, end: 20190703
  11. EPIDIOLEX [Suspect]
     Active Substance: CANNABIDIOL
     Dosage: 340 MILLIGRAM, BID
     Route: 048
     Dates: start: 20190704, end: 20190711

REACTIONS (11)
  - Bradyphrenia [Recovered/Resolved]
  - Anxiety [Recovered/Resolved]
  - Aggression [Recovered/Resolved]
  - Dysarthria [Recovered/Resolved]
  - Fatigue [Recovered/Resolved]
  - Impaired quality of life [Recovered/Resolved]
  - Slow speech [Recovered/Resolved]
  - Depressed mood [Recovered/Resolved]
  - Liver function test increased [Recovered/Resolved]
  - Somnolence [Recovered/Resolved]
  - Psychotic behaviour [Recovered/Resolved]

NARRATIVE: CASE EVENT DATE: 201907
